FAERS Safety Report 20610349 (Version 2)
Quarter: 2022Q2

REPORT INFORMATION
  Report Type: Report from Study
  Country: US (occurrence: US)
  Receive Date: 20220318
  Receipt Date: 20220526
  Transmission Date: 20220721
  Serious: Yes (Hospitalization)
  Sender: FDA-Public Use
  Company Number: US-NOVARTISPH-NVSC2022US059823

PATIENT
  Age: 20 Year
  Sex: Female

DRUGS (1)
  1. ADAKVEO [Suspect]
     Active Substance: CRIZANLIZUMAB-TMCA
     Indication: Sickle cell disease
     Dosage: UNK
     Route: 042

REACTIONS (2)
  - Pain [Recovering/Resolving]
  - Illness [Unknown]

NARRATIVE: CASE EVENT DATE: 20220226
